FAERS Safety Report 7485633-0 (Version None)
Quarter: 2011Q2

REPORT INFORMATION
  Report Type: 
  Country: None (occurrence: None)
  Receive Date: 20110517
  Receipt Date: 20071019
  Transmission Date: 20111010
  Serious: Yes (Hospitalization, Disabling, Other)
  Sender: FDA-Public Use
  Company Number: US-BAYER-200714010BWH

PATIENT
  Age: 64 Year
  Sex: Male
  Weight: 100 kg

DRUGS (16)
  1. PROTAMINE SULFATE [Concomitant]
     Dosage: UNK
     Dates: start: 20060405
  2. TRASYLOL [Suspect]
     Dosage: 25ML/HOUR TOTAL 400 ML INFUSION
     Route: 041
     Dates: start: 20060405, end: 20060405
  3. LIPITOR [Concomitant]
     Dosage: 40 MG
     Route: 048
  4. SYNTHROID [Concomitant]
     Dosage: 75 MCG
     Route: 048
     Dates: start: 20050101
  5. INSULIN [Concomitant]
     Dosage: UNK
     Dates: start: 20060405
  6. LASIX [Concomitant]
     Route: 048
  7. NEO-SYNEPHRINOL [Concomitant]
     Dosage: UNK
     Dates: start: 20060405
  8. HEPARIN [Concomitant]
     Dosage: UNK
     Dates: start: 20060405
  9. ASPIRIN [Concomitant]
     Dosage: 81 MG
     Route: 048
  10. TRASYLOL [Suspect]
     Indication: AORTIC VALVE REPLACEMENT
     Dosage: 200 ML LOADING DOSE
     Route: 042
     Dates: start: 20060405, end: 20060405
  11. QUINAPRIL [Concomitant]
     Dosage: 40 MG
     Route: 048
  12. TRASYLOL [Suspect]
     Indication: CORONARY ARTERY BYPASS
     Dosage: 1 ML TEST DOSE
     Route: 042
     Dates: start: 20060405, end: 20060405
  13. CALAN SLOW RELEASE [Concomitant]
     Dosage: 240 MG
     Route: 048
  14. OMNIPAQUE 140 [Concomitant]
     Dosage: UNK
     Dates: start: 20050404, end: 20050404
  15. INDOCIN [Concomitant]
     Route: 048
  16. HYTRIN [Concomitant]
     Dosage: 2 MG
     Route: 048

REACTIONS (9)
  - INJURY [None]
  - EMOTIONAL DISTRESS [None]
  - PAIN [None]
  - DEPRESSION [None]
  - RENAL FAILURE [None]
  - FEAR [None]
  - UNEVALUABLE EVENT [None]
  - ANXIETY [None]
  - ANHEDONIA [None]
